FAERS Safety Report 7054613-1 (Version None)
Quarter: 2010Q4

REPORT INFORMATION
  Report Type: 
  Country: None (occurrence: None)
  Receive Date: 20101020
  Receipt Date: 20101012
  Transmission Date: 20110411
  Serious: Yes (Hospitalization)
  Sender: FDA-Public Use
  Company Number: US-GILEAD-2010-0031105

PATIENT
  Sex: Male
  Weight: 109 kg

DRUGS (11)
  1. LETAIRIS [Suspect]
     Indication: PULMONARY ARTERIAL HYPERTENSION
     Route: 048
     Dates: start: 20100126
  2. REVATIO [Concomitant]
  3. LASIX [Concomitant]
  4. METOLAZONE [Concomitant]
  5. TOPROL-XL [Concomitant]
  6. LANOXIN [Concomitant]
  7. PROSCAR [Concomitant]
  8. GLUCOTROL [Concomitant]
  9. CASODEX [Concomitant]
  10. FISH OIL [Concomitant]
  11. CALCIUM [Concomitant]

REACTIONS (2)
  - CARDIAC FAILURE CONGESTIVE [None]
  - GENERALISED OEDEMA [None]
